FAERS Safety Report 4767273-7 (Version None)
Quarter: 2005Q3

REPORT INFORMATION
  Report Type: 
  Country: None (occurrence: None)
  Receive Date: 20050913
  Receipt Date: 20050815
  Transmission Date: 20060218
  Serious: Yes (Other)
  Sender: FDA-Public Use
  Company Number: 2005-08-0496

PATIENT
  Age: 43 Year
  Sex: Male
  Weight: 150 kg

DRUGS (5)
  1. WELLBUTRIN [Suspect]
     Indication: DRUG USE FOR UNKNOWN INDICATION
     Route: 065
  2. PEG-INTRON [Suspect]
     Indication: HEPATITIS C
     Route: 058
     Dates: start: 20050420, end: 20050804
  3. REBETOL [Suspect]
     Indication: HEPATITIS C
     Dosage: 600MG TWICE PER DAY
     Route: 048
     Dates: start: 20050420, end: 20050804
  4. LIBRAX [Concomitant]
     Route: 048
     Dates: start: 20050610
  5. NAPROXEN [Concomitant]
     Dosage: 500MG PER DAY
     Route: 048
     Dates: start: 20050504

REACTIONS (5)
  - AGGRESSION [None]
  - ANGER [None]
  - CONDITION AGGRAVATED [None]
  - INCORRECT DOSE ADMINISTERED [None]
  - SUICIDAL IDEATION [None]
